FAERS Safety Report 21763184 (Version 2)
Quarter: 2022Q4

REPORT INFORMATION
  Report Type: Report from Study
  Country: CA (occurrence: CA)
  Receive Date: 20221221
  Receipt Date: 20221222
  Transmission Date: 20230112
  Serious: Yes (Hospitalization, Other)
  Sender: FDA-Public Use
  Company Number: CA-HLS-202202236

PATIENT
  Age: 57 Year
  Sex: Female

DRUGS (7)
  1. CLOZARIL [Suspect]
     Active Substance: CLOZAPINE
     Indication: Hallucination, auditory
     Dosage: 125 MG DAILY
     Route: 048
     Dates: start: 20200326, end: 20220722
  2. CLOZARIL [Suspect]
     Active Substance: CLOZAPINE
     Indication: Psychotic symptom
     Dosage: 125 MG DAILY
     Route: 048
     Dates: start: 20200326, end: 20220722
  3. ZOPICLONE [Concomitant]
     Active Substance: ZOPICLONE
     Indication: Insomnia
     Dosage: 1 TABLET OF 5 MG AT BEDTIME AS NEEDED
     Route: 048
     Dates: start: 20220826, end: 20221010
  4. ZOPICLONE [Concomitant]
     Active Substance: ZOPICLONE
     Indication: Insomnia
     Dosage: 1 TABLET OF 7.5 MG AT BEDTIME AS NEEDED
     Route: 048
     Dates: start: 20220323, end: 20220825
  5. ZOPICLONE [Concomitant]
     Active Substance: ZOPICLONE
     Indication: Insomnia
     Dosage: 15 MG AT BEDTIME
     Route: 048
  6. ZOPICLONE [Concomitant]
     Active Substance: ZOPICLONE
     Indication: Insomnia
     Dosage: 1-2 TABLETS OF 5MG AS NEEDED
     Route: 048
     Dates: start: 20221011
  7. Congentin [Concomitant]
     Indication: Extrapyramidal disorder
     Route: 065

REACTIONS (12)
  - Hallucination, auditory [Unknown]
  - Blood pressure increased [Unknown]
  - Diarrhoea [Unknown]
  - Intentional self-injury [Unknown]
  - Extrapyramidal disorder [Unknown]
  - Influenza [Unknown]
  - Glomerular filtration rate decreased [Recovered/Resolved]
  - Tremor [Unknown]
  - Neutropenia [Recovered/Resolved]
  - Off label use [Recovered/Resolved]
  - Schizophrenia [Unknown]
  - Psychotic symptom [Unknown]

NARRATIVE: CASE EVENT DATE: 20220717
